FAERS Safety Report 6819544-8 (Version None)
Quarter: 2010Q3

REPORT INFORMATION
  Report Type: 
  Country: None (occurrence: None)
  Receive Date: 20100707
  Receipt Date: 20100628
  Transmission Date: 20110219
  Serious: Yes (Other)
  Sender: FDA-Public Use
  Company Number: JP-ASTRAZENECA-2010SE24913

PATIENT
  Age: 22626 Day
  Sex: Female
  Weight: 72.1 kg

DRUGS (13)
  1. SEROQUEL [Suspect]
     Indication: SCHIZOPHRENIA
     Route: 048
     Dates: start: 20091114, end: 20100522
  2. URSO 250 [Suspect]
     Indication: CHRONIC HEPATITIS
     Route: 048
     Dates: start: 20091017, end: 20100522
  3. RISPERDAL [Concomitant]
     Indication: SCHIZOPHRENIA
     Dates: start: 19991127
  4. DIAZEPAM [Concomitant]
     Indication: SCHIZOPHRENIA
     Dates: start: 19981024
  5. TASMOLIN [Concomitant]
     Indication: SCHIZOPHRENIA
     Dates: start: 19980901
  6. ROHYPNOL [Concomitant]
     Indication: SCHIZOPHRENIA
     Dates: start: 19980901
  7. BENZALIN [Concomitant]
     Indication: SCHIZOPHRENIA
     Dates: start: 19980901
  8. EURODIN [Concomitant]
     Indication: SCHIZOPHRENIA
     Dates: start: 19980901
  9. DORAL [Concomitant]
     Indication: SCHIZOPHRENIA
     Dates: start: 20060301
  10. BLONANSERIN [Concomitant]
     Dates: start: 20080801
  11. SAWADARON [Concomitant]
     Indication: NEUROGENIC BLADDER
     Dates: start: 20071001
  12. TRIHEXYPHENIDYL HCL [Concomitant]
     Indication: SCHIZOPHRENIA
     Dates: start: 20090516
  13. HIBERNA [Concomitant]
     Indication: SCHIZOPHRENIA
     Dates: start: 19980901

REACTIONS (2)
  - DIABETES MELLITUS [None]
  - HEPATIC FUNCTION ABNORMAL [None]
